FAERS Safety Report 6088794-3 (Version None)
Quarter: 2009Q1

REPORT INFORMATION
  Report Type: 
  Country: None (occurrence: None)
  Receive Date: 20090219
  Receipt Date: 20090209
  Transmission Date: 20090719
  Serious: Yes (Other)
  Sender: FDA-Public Use
  Company Number: SPV1-2009-00190

PATIENT
  Age: 60 Year
  Sex: Female

DRUGS (1)
  1. FOSRENOL [Suspect]

REACTIONS (2)
  - EPIGASTRIC DISCOMFORT [None]
  - PANCREATITIS [None]
